FAERS Safety Report 8793305 (Version 1)
Quarter: 2012Q4

REPORT INFORMATION
  Report Type: 
  Country: US (occurrence: US)
  Receive Date: 20120918
  Receipt Date: 20120918
  Transmission Date: 20130627
  Serious: Yes (Death)
  Sender: FDA-Public Use
  Company Number: US-BAYER-2012-096647

PATIENT
  Age: 36 Year
  Sex: Female

DRUGS (11)
  1. BEYAZ [Suspect]
  2. YAZ [Suspect]
  3. SOLODYN [Concomitant]
     Dosage: 115 mg, daily
     Route: 048
  4. CLARAVIS [Concomitant]
     Dosage: 30 mg, for 4 weeks
     Route: 048
  5. FLAXSEED OIL [Concomitant]
     Dosage: UNK UNK, BID
  6. METABOLIC MULTI [Concomitant]
     Dosage: UNK UNK, BID
  7. ZIANA [Concomitant]
     Indication: DERMATITIS PAPILLARIS CAPILLITII
  8. CLINDAMYCIN 1.2% TRETINOIN .025% [Concomitant]
     Indication: DERMATITIS PAPILLARIS CAPILLITII
     Dosage: 60 mg, ONCE, nightly
     Route: 061
  9. OLUX-E FOAM [Concomitant]
     Indication: DERMATITIS PAPILLARIS CAPILLITII
     Dosage: 0.05 %, BID, 1 application
     Route: 061
  10. ACCUTANE [Concomitant]
  11. SORBOLENE (CERAVE CREAM) [Concomitant]
     Dosage: UNK UNK, BID

REACTIONS (1)
  - Pulmonary embolism [Fatal]
